FAERS Safety Report 25996145 (Version 1)
Quarter: 2025Q4

REPORT INFORMATION
  Report Type: Spontaneous
  Country: US (occurrence: None)
  Receive Date: 20251104
  Receipt Date: 20251104
  Transmission Date: 20260117
  Serious: Yes (Hospitalization)
  Sender: FDA-CTU
  Company Number: None

PATIENT
  Sex: Male

DRUGS (6)
  1. TOBRAMYCIN [Suspect]
     Active Substance: TOBRAMYCIN
     Route: 055
     Dates: start: 20241004
  2. VANCOMYCIN [Suspect]
     Active Substance: VANCOMYCIN
  3. ANTI-GAS [Concomitant]
     Active Substance: DIMETHICONE
  4. OMEPRAZOLE [Concomitant]
     Active Substance: OMEPRAZOLE
  5. SUCRALFATE [Concomitant]
     Active Substance: SUCRALFATE
  6. VITAMIN D [Concomitant]
     Active Substance: VITAMIN D NOS

REACTIONS (7)
  - Pneumonia [None]
  - Pneumonia [None]
  - Contrast media allergy [None]
  - Drug hypersensitivity [None]
  - Swelling face [None]
  - Urticaria [None]
  - Sleep disorder [None]
